FAERS Safety Report 5742795-0 (Version None)
Quarter: 2008Q2

REPORT INFORMATION
  Report Type: 
  Country: None (occurrence: None)
  Receive Date: 20080519
  Receipt Date: 20080514
  Transmission Date: 20081010
  Serious: Yes (Hospitalization)
  Sender: FDA-Public Use
  Company Number: US-MERCK-0704USA06299

PATIENT
  Age: 61 Year
  Sex: Male

DRUGS (4)
  1. COZAAR [Suspect]
     Route: 048
  2. CLARITIN [Suspect]
     Route: 048
  3. DILANTIN [Suspect]
     Route: 048
  4. BACLOFEN [Suspect]
     Route: 048

REACTIONS (6)
  - HYPERTENSION [None]
  - HYPOTENSION [None]
  - MULTIPLE DRUG OVERDOSE [None]
  - PAIN [None]
  - SUICIDE ATTEMPT [None]
  - URINARY RETENTION [None]
